FAERS Safety Report 6146540-9 (Version None)
Quarter: 2009Q2

REPORT INFORMATION
  Report Type: 
  Country: None (occurrence: None)
  Receive Date: 20090407
  Receipt Date: 20090326
  Transmission Date: 20091009
  Serious: Yes (Hospitalization)
  Sender: FDA-Public Use
  Company Number: AU-AVENTIS-200911016EU

PATIENT
  Age: 59 Year
  Sex: Male

DRUGS (1)
  1. RILUTEK [Suspect]
     Route: 048
     Dates: start: 20080525

REACTIONS (5)
  - DEHYDRATION [None]
  - HYPOTENSION [None]
  - HYPOVOLAEMIA [None]
  - MEDICAL DEVICE COMPLICATION [None]
  - TRANSIENT ISCHAEMIC ATTACK [None]
